FAERS Safety Report 23524490 (Version 1)
Quarter: 2024Q1

REPORT INFORMATION
  Report Type: Report from Study
  Country: NL (occurrence: NL)
  Receive Date: 20240214
  Receipt Date: 20240214
  Transmission Date: 20240410
  Serious: Yes (Hospitalization, Other)
  Sender: FDA-Public Use
  Company Number: NL-ABBVIE-5637684

PATIENT
  Age: 71 Year
  Sex: Female

DRUGS (12)
  1. CARBIDOPA\LEVODOPA [Suspect]
     Active Substance: CARBIDOPA\LEVODOPA
     Indication: Parkinson^s disease
     Dosage: MD:16.0ML; CD:2.8ML/H; ED:4.0ML?REMAINS AT 16 HOURS
     Route: 050
     Dates: start: 20240104, end: 20240119
  2. CARBIDOPA\LEVODOPA [Suspect]
     Active Substance: CARBIDOPA\LEVODOPA
     Dosage: MD:16.0ML; CD:2.8ML/H; ED:4.0ML?REMAINS AT 16 HOURS
     Route: 050
     Dates: start: 20240119
  3. CARBIDOPA\LEVODOPA [Suspect]
     Active Substance: CARBIDOPA\LEVODOPA
     Dosage: MD:16.0ML; CD:2.4ML/H; ED:4.0ML?REMAINS AT 16 HOURS
     Route: 050
     Dates: start: 20231228, end: 20240104
  4. CARBIDOPA\LEVODOPA [Suspect]
     Active Substance: CARBIDOPA\LEVODOPA
     Dosage: MD:15.0ML; CD:2.1ML/H; ED:3.0ML?REMAINS AT 16 HOURS
     Route: 050
     Dates: start: 20231220, end: 20231228
  5. CARBIDOPA\LEVODOPA [Suspect]
     Active Substance: CARBIDOPA\LEVODOPA
     Dosage: LAST ADMIN DATE WAS DEC 2023?REMAINS AT 16 HOURS.
     Route: 050
     Dates: start: 20231218
  6. CARBIDOPA\LEVODOPA [Suspect]
     Active Substance: CARBIDOPA\LEVODOPA
     Dosage: MD:13.0ML; CD:1.4ML/H; ED:1.0ML?REMAINS AT 16 HOURS.
     Route: 050
     Dates: start: 20231219, end: 20231220
  7. CARBIDOPA\LEVODOPA [Suspect]
     Active Substance: CARBIDOPA\LEVODOPA
     Dosage: MD:13.0ML; CD:2.3ML/H; ED:4.0ML?REMAINS AT 16 HOURS
     Route: 050
     Dates: start: 20231220, end: 20231220
  8. LEVODOPA/CARBIDOPA PCH RETARD [Concomitant]
     Indication: Parkinson^s disease
     Dosage: 100/25MG
  9. RIVOTRIL [Concomitant]
     Active Substance: CLONAZEPAM
     Indication: Parkinson^s disease
     Dosage: 2.5MG/ML, 2 DROPS FOR THE NIGHT
  10. RIVOTRIL [Concomitant]
     Active Substance: CLONAZEPAM
     Indication: Parkinson^s disease
     Dosage: 1 X 0.5 PER DAY?FORM STRENGTH: 500 MICROGRAM
  11. RIVASTIGMINE [Concomitant]
     Active Substance: RIVASTIGMINE
     Indication: Parkinson^s disease
     Dosage: 9.5MG/24H
  12. POLYETHYLENE GLYCOLS [Concomitant]
     Active Substance: POLYETHYLENE GLYCOLS
     Indication: Product used for unknown indication

REACTIONS (1)
  - Rectal perforation [Not Recovered/Not Resolved]
